FAERS Safety Report 15484178 (Version 2)
Quarter: 2018Q4

REPORT INFORMATION
  Report Type: Spontaneous
  Country: US (occurrence: US)
  Receive Date: 20181010
  Receipt Date: 20181101
  Transmission Date: 20190205
  Serious: Yes (Other)
  Sender: FDA-Public Use
  Company Number: US-AMGEN-USASP2018140011

PATIENT
  Age: 16 Year
  Sex: Female

DRUGS (2)
  1. EPOGEN [Suspect]
     Active Substance: ERYTHROPOIETIN
     Dosage: UNK (DOSE INCREASED)
     Route: 065
  2. EPOGEN [Suspect]
     Active Substance: ERYTHROPOIETIN
     Indication: NEPHROGENIC ANAEMIA
     Dosage: 7000 UNIT, 4 TIMES/WK (MONDAYS, WEDNESDAYS, FRIDAYS AND SATURDAYS)
     Route: 065

REACTIONS (6)
  - Drug ineffective [Unknown]
  - Transplant [Unknown]
  - Abscess [Unknown]
  - Gastrointestinal disorder [Unknown]
  - Haemoglobin decreased [Unknown]
  - Gastrointestinal inflammation [Unknown]

NARRATIVE: CASE EVENT DATE: 2018
